FAERS Safety Report 5571100-8 (Version None)
Quarter: 2007Q4

REPORT INFORMATION
  Report Type: 
  Country: None (occurrence: None)
  Receive Date: 20071221
  Receipt Date: 20071217
  Transmission Date: 20080405
  Serious: Yes (Life-Threatening, Hospitalization, Other)
  Sender: FDA-Public Use
  Company Number: GB-MERCK-0712GBR00073

PATIENT
  Age: 76 Year
  Sex: Female
  Weight: 70 kg

DRUGS (11)
  1. FOSAMAX [Suspect]
     Route: 048
     Dates: start: 20070914, end: 20071203
  2. ASPIRIN [Suspect]
     Route: 048
  3. ALBUTEROL SULFATE AND IPRATROPIUM BROMIDE [Concomitant]
  4. DIGOXIN [Concomitant]
     Route: 048
  5. EZETIMIBE [Concomitant]
     Route: 048
  6. NITROGLYCERIN [Concomitant]
  7. NITROGLYCERIN [Concomitant]
     Route: 060
  8. ISOSORBIDE MONONITRATE [Concomitant]
     Route: 048
  9. FLUTICASONE PROPIONATE AND SALMETEROL XINAFOATE [Concomitant]
  10. SIMVASTATIN [Concomitant]
     Route: 048
  11. SPIRONOLACTONE [Concomitant]
     Route: 048

REACTIONS (4)
  - ANAEMIA [None]
  - GASTRITIS EROSIVE [None]
  - OESOPHAGITIS [None]
  - SYNCOPE [None]
